FAERS Safety Report 4269870-4 (Version None)
Quarter: 2004Q1

REPORT INFORMATION
  Report Type: 
  Country: None (occurrence: None)
  Receive Date: 20040114
  Receipt Date: 20040107
  Transmission Date: 20041129
  Serious: Yes (Hospitalization, Other)
  Sender: FDA-Public Use
  Company Number: 200410137US

PATIENT
  Sex: Female
  Weight: 55.9 kg

DRUGS (10)
  1. TAXOTERE [Suspect]
     Indication: OROPHARYNGEAL CANCER STAGE UNSPECIFIED
     Route: 042
     Dates: start: 20031028, end: 20031209
  2. CISPLATIN [Suspect]
     Indication: OROPHARYNGEAL CANCER STAGE UNSPECIFIED
     Route: 042
     Dates: start: 20031028, end: 20031209
  3. CARBOPLATIN [Suspect]
     Indication: OROPHARYNGEAL CANCER STAGE UNSPECIFIED
     Dosage: DOSE: AUC 6
     Route: 042
     Dates: start: 20031118, end: 20031209
  4. HEPARIN [Suspect]
     Indication: DEEP VEIN THROMBOSIS
     Dosage: DOSE: UNK
  5. COUMADIN [Suspect]
     Indication: DEEP VEIN THROMBOSIS
  6. RADIATION THERAPY [Suspect]
     Indication: OROPHARYNGEAL CANCER STAGE UNSPECIFIED
     Dosage: DOSE: UNK
  7. DURAGESIC [Concomitant]
     Route: 062
  8. PERCOCET [Concomitant]
     Dates: end: 20031223
  9. PROTONIX [Concomitant]
     Dates: end: 20031223
  10. CELEBREX [Concomitant]
     Dates: end: 20031223

REACTIONS (7)
  - EPISTAXIS [None]
  - HAEMORRHAGE [None]
  - HEPARIN-INDUCED THROMBOCYTOPENIA [None]
  - INTERNATIONAL NORMALISED RATIO INCREASED [None]
  - RHINORRHOEA [None]
  - THROMBOSIS [None]
  - UPPER RESPIRATORY TRACT INFECTION [None]
